FAERS Safety Report 9138136 (Version 1)
Quarter: 2013Q1

REPORT INFORMATION
  Report Type: Spontaneous
  Country: CA (occurrence: CA)
  Receive Date: 20130304
  Receipt Date: 20130304
  Transmission Date: 20140127
  Serious: Yes (Other)
  Sender: FDA-Public Use
  Company Number: CA-BAUSCH-BL-2012-002244

PATIENT
  Age: 49 Year
  Sex: Male

DRUGS (6)
  1. BESIVANCE (BESIFLOXACIN OPHTHALMIC SUSPENSION) 0.6% [Suspect]
     Indication: POSTOPERATIVE CARE
     Dosage: 4 TIMES DAILY IN BOTH THE EYES
     Route: 047
  2. BESIVANCE (BESIFLOXACIN OPHTHALMIC SUSPENSION) 0.6% [Suspect]
     Indication: OFF LABEL USE
  3. LOTEMAX (LOTEPREDNOL ETABONATE OPHTHALMIC SUSPENSION 0.5%) [Suspect]
     Indication: POSTOPERATIVE CARE
     Dosage: 4 TIMES DAILY IN BOTH THE EYES
     Route: 047
  4. LOTEMAX (LOTEPREDNOL ETABONATE OPHTHALMIC SUSPENSION 0.5%) [Suspect]
     Indication: OFF LABEL USE
     Dosage: DROPS; OPHTHALMIC
     Route: 047
     Dates: start: 20121122
  5. LIPOSIC OPHTHALMIC DROPS [Suspect]
     Indication: POSTOPERATIVE CARE
     Dosage: DROPS; OPHTHALMIC
  6. LIPOSIC OPHTHALMIC DROPS [Suspect]
     Indication: OFF LABEL USE

REACTIONS (15)
  - Diffuse lamellar keratitis [Unknown]
  - Eye oedema [Recovered/Resolved]
  - Photosensitivity reaction [Recovered/Resolved]
  - Eye pain [Recovered/Resolved]
  - Strabismus [Recovered/Resolved]
  - Ocular discomfort [Recovered/Resolved]
  - Dry eye [Recovered/Resolved]
  - Corneal infiltrates [Unknown]
  - Lacrimation increased [Recovered/Resolved]
  - Eye burns [Recovered/Resolved]
  - Eye inflammation [Recovered/Resolved]
  - Corneal deposits [Recovered/Resolved]
  - Medication residue present [Recovered/Resolved]
  - Visual impairment [Unknown]
  - Corneal striae [Unknown]
